FAERS Safety Report 9907220 (Version 2)
Quarter: 2014Q1

REPORT INFORMATION
  Report Type: Spontaneous
  Country: DK (occurrence: FR)
  Receive Date: 20140218
  Receipt Date: 20140218
  Transmission Date: 20141002
  Serious: Yes (Hospitalization)
  Sender: FDA-Public Use
  Company Number: FR-FRI-1000053967

PATIENT
  Age: 54 Year
  Sex: Female

DRUGS (6)
  1. ESCITALOPRAM [Suspect]
     Indication: DEPRESSION
     Dosage: 1 DF
     Route: 048
     Dates: start: 2006, end: 20131214
  2. LAROXYL [Concomitant]
  3. LEXOMIL [Concomitant]
  4. ACTONEL [Concomitant]
  5. SKENAN [Concomitant]
     Dosage: 20 MG
  6. PROTHIADEN [Concomitant]
     Dates: start: 20131213

REACTIONS (6)
  - Tremor [Unknown]
  - Agitation [Unknown]
  - Insomnia [Unknown]
  - Hyperhidrosis [Unknown]
  - Dizziness [Unknown]
  - Withdrawal syndrome [Unknown]
